FAERS Safety Report 7966852-3 (Version None)
Quarter: 2011Q4

REPORT INFORMATION
  Report Type: 
  Country: None (occurrence: None)
  Receive Date: 20111209
  Receipt Date: 20111206
  Transmission Date: 20120403
  Serious: Yes (Life-Threatening, Other)
  Sender: FDA-Public Use
  Company Number: CA-BRISTOL-MYERS SQUIBB COMPANY-16273518

PATIENT
  Age: 59 Year
  Sex: Male

DRUGS (5)
  1. GLAXAL BASE [Concomitant]
     Dates: start: 20111004
  2. ERBITUX [Suspect]
     Indication: NON-SMALL CELL LUNG CANCER
     Dosage: 14SEP-14SEP11,400MG/M2 05OCT-30NOV11,250MG/M2
     Route: 042
     Dates: start: 20110914
  3. CISPLATIN [Suspect]
     Indication: NON-SMALL CELL LUNG CANCER
     Dosage: INTERRUPTED ON 30NOV11
     Route: 042
     Dates: start: 20110914
  4. VINORELBINE [Suspect]
     Indication: NON-SMALL CELL LUNG CANCER
     Dosage: INTERRUPTED ON 30NOV11
     Route: 042
     Dates: start: 20110914
  5. MAGNESIUM SULFATE [Concomitant]
     Dates: start: 20111115

REACTIONS (2)
  - INFECTIOUS PERITONITIS [None]
  - DIVERTICULAR PERFORATION [None]
